FAERS Safety Report 4514826-7 (Version None)
Quarter: 2004Q4

REPORT INFORMATION
  Report Type: 
  Country: None (occurrence: None)
  Receive Date: 20041126
  Receipt Date: 20041110
  Transmission Date: 20050328
  Serious: Yes (Hospitalization)
  Sender: FDA-Public Use
  Company Number: 2004AP03679

PATIENT
  Age: 50 Year
  Sex: Female

DRUGS (5)
  1. NAROPIN [Suspect]
     Indication: NERVE BLOCK
     Dosage: 81 MG DAILY RNB
     Dates: start: 20040713, end: 20040713
  2. CARBOPLATIN [Suspect]
     Indication: NERVE BLOCK
     Dosage: 144 MG DAILY RNB
     Dates: start: 20040713, end: 20040713
  3. SEVOFRANE [Concomitant]
  4. NITROUS OXIDE [Concomitant]
  5. FENTANYL [Concomitant]

REACTIONS (4)
  - ARRHYTHMIA SUPRAVENTRICULAR [None]
  - BRADYCARDIA [None]
  - EXTRASYSTOLES [None]
  - SINUS ARREST [None]
